FAERS Safety Report 4356163-X (Version None)
Quarter: 2004Q2

REPORT INFORMATION
  Report Type: 
  Country: None (occurrence: None)
  Receive Date: 20040506
  Receipt Date: 20040426
  Transmission Date: 20050107
  Serious: Yes (Other)
  Sender: FDA-Public Use
  Company Number: DE-JNJFOC-20040405766

PATIENT
  Sex: Female

DRUGS (1)
  1. REMICADE [Suspect]
     Indication: MUSCULOSKELETAL PAIN
     Dosage: INTRAVENOUS
     Route: 042

REACTIONS (1)
  - CHRONIC LYMPHOCYTIC LEUKAEMIA [None]
